FAERS Safety Report 7046974-4 (Version None)
Quarter: 2010Q4

REPORT INFORMATION
  Report Type: 
  Country: None (occurrence: None)
  Receive Date: 20101012
  Receipt Date: 20100927
  Transmission Date: 20110411
  Serious: Yes (Hospitalization, Other)
  Sender: FDA-Public Use
  Company Number: 2010AP002089

PATIENT
  Age: 14 Year
  Sex: Female

DRUGS (6)
  1. LAMOTRIGINE [Suspect]
     Indication: EPILEPSY
     Dosage: 200 MG;BID, PO
     Route: 048
  2. TOPIRAMATE [Suspect]
     Indication: PRODUCT USED FOR UNKNOWN INDICATION
  3. TOPAMAX (TOPIRAMATE) /AUS/ [Suspect]
     Dosage: SEE IMAGE
     Route: 048
     Dates: start: 20070401
  4. TOPAMAX (TOPIRAMATE) /AUS/ [Suspect]
     Dosage: SEE IMAGE
     Route: 048
     Dates: start: 20100501
  5. TOPAMAX (TOPIRAMATE) /AUS/ [Suspect]
     Dosage: SEE IMAGE
     Route: 048
     Dates: start: 20100601
  6. TOPAMAX (TOPIRAMATE) /AUS/ [Suspect]
     Dosage: SEE IMAGE
     Route: 048
     Dates: start: 20100709

REACTIONS (10)
  - ABASIA [None]
  - BALANCE DISORDER [None]
  - CONDITION AGGRAVATED [None]
  - DIZZINESS [None]
  - DYSARTHRIA [None]
  - HEADACHE [None]
  - NERVOUS SYSTEM DISORDER [None]
  - PETIT MAL EPILEPSY [None]
  - PRODUCT SUBSTITUTION ISSUE [None]
  - VISION BLURRED [None]
